FAERS Safety Report 16982657 (Version 1)
Quarter: 2019Q4

REPORT INFORMATION
  Report Type: Spontaneous
  Country: US (occurrence: US)
  Receive Date: 20191101
  Receipt Date: 20191101
  Transmission Date: 20200122
  Serious: No
  Sender: FDA-Public Use
  Company Number: NVSC2019US021522

PATIENT
  Age: 9 Year
  Sex: Male

DRUGS (4)
  1. ALBUTEROL. [Concomitant]
     Active Substance: ALBUTEROL
     Indication: STATUS ASTHMATICUS
     Dosage: UNK
     Route: 065
  2. FLUTICASONE. [Suspect]
     Active Substance: FLUTICASONE
     Dosage: 220 MCG/ML, BID
     Route: 055
  3. BECLOMETHASONE [Concomitant]
     Active Substance: BECLOMETHASONE
     Indication: STATUS ASTHMATICUS
     Route: 055
  4. FLUTICASONE. [Suspect]
     Active Substance: FLUTICASONE
     Indication: STATUS ASTHMATICUS
     Dosage: 88 MCG/ML, BID
     Route: 055

REACTIONS (1)
  - Tic [Recovered/Resolved]
